FAERS Safety Report 4373328-1 (Version None)
Quarter: 2004Q2

REPORT INFORMATION
  Report Type: 
  Country: None (occurrence: None)
  Receive Date: 20040603
  Receipt Date: 20040527
  Transmission Date: 20050107
  Serious: Yes (Other)
  Sender: FDA-Public Use
  Company Number: US-SHR-04-021086

PATIENT
  Age: 40 Year
  Sex: Female

DRUGS (5)
  1. FLUDARA [Suspect]
     Indication: CHRONIC LYMPHOCYTIC LEUKAEMIA
     Dosage: MODERATE DOSE, INTRAVENOUS
     Route: 042
     Dates: start: 20040210
  2. CAMPATH [Suspect]
     Indication: CHRONIC LYMPHOCYTIC LEUKAEMIA
     Dosage: SEE IMAGE
     Route: 058
     Dates: start: 20040209, end: 20040209
  3. CAMPATH [Suspect]
     Indication: CHRONIC LYMPHOCYTIC LEUKAEMIA
     Dosage: SEE IMAGE
     Route: 058
     Dates: start: 20040210, end: 20040210
  4. ZOFRAN [Concomitant]
  5. DEXAMETHASONE [Concomitant]

REACTIONS (4)
  - CHEST DISCOMFORT [None]
  - INFUSION RELATED REACTION [None]
  - INJECTION SITE URTICARIA [None]
  - TONIC CONVULSION [None]
